FAERS Safety Report 16061577 (Version 1)
Quarter: 2019Q2

REPORT INFORMATION
  Report Type: Spontaneous
  Country: US (occurrence: US)
  Receive Date: 20190312
  Receipt Date: 20190312
  Transmission Date: 20190711
  Serious: Yes (Hospitalization)
  Sender: FDA-Public Use
  Company Number: None

PATIENT
  Sex: Female

DRUGS (4)
  1. AZELEX CREAM 20% [Concomitant]
     Dates: start: 20190227
  2. TRI-LUMA CREAM [Concomitant]
     Dates: start: 20190225
  3. XELJANZ XR [Suspect]
     Active Substance: TOFACITINIB CITRATE
     Indication: RHEUMATOID ARTHRITIS
     Route: 048
  4. PREDNISONE 20MG TABLETS [Concomitant]
     Active Substance: PREDNISONE
     Dates: start: 20190311

REACTIONS (1)
  - Rheumatoid arthritis [None]
